FAERS Safety Report 9375741 (Version 2)
Quarter: 2013Q3

REPORT INFORMATION
  Report Type: Spontaneous
  Country: GB (occurrence: GB)
  Receive Date: 20130628
  Receipt Date: 20130708
  Transmission Date: 20140515
  Serious: Yes (Other)
  Sender: FDA-Public Use
  Company Number: PHHY2013GB064647

PATIENT
  Age: 76 Year
  Sex: Male

DRUGS (7)
  1. DILTIAZEM [Suspect]
     Indication: SUPRAVENTRICULAR TACHYCARDIA
     Dosage: 180 MG, ONE SINGLE DOSE
     Route: 048
     Dates: start: 20130606, end: 20130606
  2. AMLODIPINE [Suspect]
     Indication: HYPERTENSION
     Dosage: 5 MG
     Route: 048
     Dates: start: 20130606, end: 20130606
  3. RAMIPRIL [Concomitant]
  4. FRUSEMIDE [Concomitant]
  5. BETAHISTINE [Concomitant]
  6. SIMVASTATIN [Concomitant]
  7. WARFARIN [Concomitant]

REACTIONS (3)
  - Renal failure acute [Recovered/Resolved]
  - Hepatitis [Recovered/Resolved]
  - Hypotension [Recovered/Resolved]
